FAERS Safety Report 21383541 (Version 1)
Quarter: 2022Q3

REPORT INFORMATION
  Report Type: Spontaneous
  Country: DE (occurrence: DE)
  Receive Date: 20220927
  Receipt Date: 20220927
  Transmission Date: 20221027
  Serious: Yes (Other)
  Sender: FDA-Public Use
  Company Number: DE-JNJFOC-20220933270

PATIENT
  Age: 6 Decade

DRUGS (7)
  1. DEXAMETHASONE [Suspect]
     Active Substance: DEXAMETHASONE
     Indication: Plasma cell myeloma
     Route: 065
     Dates: start: 20220215
  2. CYCLOPHOSPHAMIDE [Suspect]
     Active Substance: CYCLOPHOSPHAMIDE
     Indication: Plasma cell myeloma
     Route: 065
     Dates: start: 20220215
  3. ETOPOSIDE [Suspect]
     Active Substance: ETOPOSIDE
     Indication: Plasma cell myeloma
     Route: 065
     Dates: start: 20220215
  4. CISPLATIN [Suspect]
     Active Substance: CISPLATIN
     Indication: Plasma cell myeloma
     Route: 065
     Dates: start: 20220215
  5. VELCADE [Suspect]
     Active Substance: BORTEZOMIB
     Indication: Plasma cell myeloma
     Route: 065
     Dates: start: 20220215
  6. DOXORUBICIN [Suspect]
     Active Substance: DOXORUBICIN
     Indication: Plasma cell myeloma
     Route: 065
     Dates: start: 20220215
  7. THALIDOMIDE [Suspect]
     Active Substance: THALIDOMIDE
     Indication: Plasma cell myeloma
     Route: 065
     Dates: start: 20220215

REACTIONS (2)
  - Plasma cell myeloma [Unknown]
  - Product use issue [Unknown]
